FAERS Safety Report 21290793 (Version 2)
Quarter: 2022Q3

REPORT INFORMATION
  Report Type: Report from Study
  Country: DE (occurrence: DE)
  Receive Date: 20220903
  Receipt Date: 20220908
  Transmission Date: 20221027
  Serious: Yes (Hospitalization, Other)
  Sender: FDA-Public Use
  Company Number: DE-NOVARTISPH-NVSC2022DE173865

PATIENT
  Sex: Female

DRUGS (12)
  1. UNSPECIFIED INGREDIENT [Suspect]
     Active Substance: UNSPECIFIED INGREDIENT
     Indication: Product used for unknown indication
     Dosage: UNK
     Route: 065
  2. CELECOXIB [Suspect]
     Active Substance: CELECOXIB
     Indication: Axial spondyloarthritis
     Dosage: 200 MG
     Route: 065
     Dates: start: 20210320
  3. ATORVASTATIN [Suspect]
     Active Substance: ATORVASTATIN
     Indication: Axial spondyloarthritis
     Dosage: 10 MG
     Route: 065
     Dates: start: 20200101
  4. LEVOTHYROXINE [Suspect]
     Active Substance: LEVOTHYROXINE
     Indication: Axial spondyloarthritis
     Dosage: 0.05 MG
     Route: 065
     Dates: start: 20200101
  5. LEVETIRACETAM [Suspect]
     Active Substance: LEVETIRACETAM
     Indication: Axial spondyloarthritis
     Dosage: 1500 MG
     Route: 065
     Dates: start: 20200401
  6. FORMOTEROL [Suspect]
     Active Substance: FORMOTEROL
     Indication: Axial spondyloarthritis
     Dosage: 0.02 MG
     Route: 065
     Dates: start: 20200101
  7. ASPIRIN [Suspect]
     Active Substance: ASPIRIN
     Indication: Axial spondyloarthritis
     Dosage: 100 MG
     Route: 065
     Dates: start: 20210702
  8. FORMOTEROL FUMARATE [Suspect]
     Active Substance: FORMOTEROL FUMARATE
     Indication: Axial spondyloarthritis
     Dosage: 0.02 MG
     Route: 065
     Dates: start: 20200101
  9. FALITHROM [Suspect]
     Active Substance: PHENPROCOUMON
     Indication: Axial spondyloarthritis
     Dosage: UNK
     Route: 065
     Dates: start: 20200101
  10. XARELTO [Suspect]
     Active Substance: RIVAROXABAN
     Indication: Axial spondyloarthritis
     Dosage: 5 MG
     Route: 065
     Dates: start: 20210702
  11. TORSEMIDE [Suspect]
     Active Substance: TORSEMIDE
     Indication: Axial spondyloarthritis
     Dosage: 2.5 MG
     Route: 065
  12. TORSEMIDE [Suspect]
     Active Substance: TORSEMIDE
     Dosage: 5 MG
     Route: 065
     Dates: start: 20210518

REACTIONS (3)
  - Dry gangrene [Not Recovered/Not Resolved]
  - Vascular graft occlusion [Not Recovered/Not Resolved]
  - Vascular graft infection [Not Recovered/Not Resolved]

NARRATIVE: CASE EVENT DATE: 20210504
